FAERS Safety Report 8826764 (Version 1)
Quarter: 2012Q4

REPORT INFORMATION
  Report Type: Report from Study
  Country: DE (occurrence: DE)
  Receive Date: 20121005
  Receipt Date: 20121005
  Transmission Date: 20130627
  Serious: Yes (Hospitalization)
  Sender: FDA-Public Use
  Company Number: PHHO2012DE014085

PATIENT
  Age: 59 Year
  Sex: Male
  Weight: 84 kg

DRUGS (13)
  1. CICLOSPORIN [Suspect]
     Dosage: 50 mg, UNK
     Dates: start: 20111001
  2. PREDNISOLONE [Suspect]
     Dosage: 5 mg, UNK
     Dates: start: 20111001
  3. EVEROLIMUS [Suspect]
     Dosage: UNK
     Dates: start: 20111001, end: 20120808
  4. BLINDED ALISKIREN [Suspect]
     Indication: CARDIAC FAILURE
     Dosage: Code not broken
     Route: 048
     Dates: start: 20110107, end: 20110329
  5. BLINDED ENALAPRIL [Suspect]
     Indication: CARDIAC FAILURE
     Dosage: Code not broken
     Route: 048
     Dates: start: 20110107, end: 20110329
  6. BLINDED NO TREATMENT RECEIVED [Suspect]
     Indication: CARDIAC FAILURE
     Dosage: Code not broken
     Route: 048
     Dates: start: 20110107, end: 20110329
  7. BLINDED ALISKIREN [Suspect]
     Dosage: No reatment
  8. BLINDED ENALAPRIL [Suspect]
     Dosage: No reatment
  9. BLINDED NO TREATMENT RECEIVED [Suspect]
     Dosage: No reatment
  10. ASS [Concomitant]
     Indication: ARTERIOSCLEROSIS
     Dosage: 100 mg, Ob
     Dates: start: 200412
  11. TORASEMIDE [Concomitant]
     Indication: RENAL FAILURE
     Dosage: 5 mg, Ob
     Dates: start: 200412
  12. PANTOPRAZOLE [Concomitant]
     Indication: GASTRITIS PROPHYLAXIS
     Dosage: 40 mg, Ob
     Dates: start: 20110503
  13. INSULIN [Concomitant]
     Indication: DIABETES MELLITUS
     Dosage: as per Lab
     Dates: start: 20110623

REACTIONS (4)
  - Empyema [Recovered/Resolved]
  - Erysipelas [Recovered/Resolved]
  - Rotator cuff syndrome [Recovered/Resolved]
  - Tendon rupture [Recovered/Resolved]
